FAERS Safety Report 6378219-2 (Version None)
Quarter: 2009Q3

REPORT INFORMATION
  Report Type: 
  Country: None (occurrence: None)
  Receive Date: 20090925
  Receipt Date: 20090916
  Transmission Date: 20100115
  Serious: No
  Sender: FDA-Public Use
  Company Number: US-ASTRAZENECA-2009UW20429

PATIENT
  Age: 47 Year
  Sex: Female
  Weight: 90.7 kg

DRUGS (5)
  1. SEROQUEL [Suspect]
     Indication: BIPOLAR DISORDER
     Route: 048
     Dates: start: 19980101
  2. HALDOL [Concomitant]
     Indication: DEPRESSION
     Dates: start: 19880101
  3. HALDOL [Concomitant]
     Indication: BIPOLAR DISORDER
     Dates: start: 19880101
  4. RISPERDAL [Concomitant]
     Dates: start: 19880101
  5. THORAZINE [Concomitant]
     Dates: start: 19880101

REACTIONS (3)
  - CARDIAC DISORDER [None]
  - LIMB DISCOMFORT [None]
  - TYPE 2 DIABETES MELLITUS [None]
